FAERS Safety Report 25170120 (Version 1)
Quarter: 2025Q2

REPORT INFORMATION
  Report Type: Spontaneous
  Country: FR (occurrence: FR)
  Receive Date: 20250407
  Receipt Date: 20250407
  Transmission Date: 20250717
  Serious: Yes (Other)
  Sender: ABBVIE
  Company Number: None

PATIENT
  Age: 92 Year
  Weight: 50 kg

DRUGS (2)
  1. ESCITALOPRAM OXALATE [Suspect]
     Active Substance: ESCITALOPRAM OXALATE
     Indication: Medication error
     Dosage: 15 MILLIGRAM QD (3 DOSAGE FORM)
     Route: 048
  2. OXAZEPAM [Suspect]
     Active Substance: OXAZEPAM
     Indication: Anxiety
     Route: 048

REACTIONS (3)
  - Confusional state [Recovered/Resolved]
  - Language disorder [Recovered/Resolved]
  - Wrong product administered [Recovered/Resolved]
